FAERS Safety Report 8062691-6 (Version None)
Quarter: 2012Q1

REPORT INFORMATION
  Report Type: 
  Country: None (occurrence: None)
  Receive Date: 20120123
  Receipt Date: 20120116
  Transmission Date: 20120608
  Serious: No
  Sender: FDA-Public Use
  Company Number: US-B.I. PHARMACEUTICALS,INC./RIDGEFIELD-2012-BP-00878BP

PATIENT
  Age: 48 Year
  Sex: Male

DRUGS (2)
  1. FLOMAX [Suspect]
     Indication: PROSTATOMEGALY
  2. SOMA [Concomitant]

REACTIONS (2)
  - SYNCOPE [None]
  - DRUG SCREEN FALSE POSITIVE [None]
